FAERS Safety Report 8470651-6 (Version None)
Quarter: 2012Q2

REPORT INFORMATION
  Report Type: 
  Country: None (occurrence: None)
  Receive Date: 20120627
  Receipt Date: 20120625
  Transmission Date: 20120825
  Serious: Yes (Other)
  Sender: FDA-Public Use
  Company Number: PHHY2012NL054605

PATIENT
  Sex: Female

DRUGS (9)
  1. ZOMETA [Suspect]
     Indication: BREAST CANCER METASTATIC
     Dosage: 4 MG/100 ML, ONCE PER 28 DAYS
  2. LEVOTHYROXINE SODIUM [Concomitant]
     Dosage: 0.25 MG, 1X5
  3. FUROSEMIDE [Concomitant]
     Dosage: UNK UKN, UNK
     Route: 065
  4. ZOMETA [Suspect]
     Dosage: 4 MG/100 ML, ONCE PER 28 DAYS
     Dates: start: 20100909
  5. ACETAMINOPHEN [Concomitant]
     Dosage: 500 MG, PRN
     Route: 065
  6. FENTANYL [Concomitant]
     Dosage: 12 MCG PER 3 DAYS
  7. ZOMETA [Suspect]
     Dosage: 4 MG/100 ML, ONCE PER 28 DAYS
     Dates: start: 20120515
  8. DICLOFENAC SODIUM [Concomitant]
     Dosage: 50 MG, TID
     Route: 065
  9. TAMOXIFEN CITRATE [Concomitant]
     Dosage: 20 MG, 1X1
     Route: 065

REACTIONS (3)
  - EMOTIONAL DISORDER [None]
  - HAEMOGLOBIN DECREASED [None]
  - TERMINAL STATE [None]
